FAERS Safety Report 9601661 (Version 2)
Quarter: 2013Q4

REPORT INFORMATION
  Report Type: Spontaneous
  Country: CA (occurrence: CA)
  Receive Date: 20131007
  Receipt Date: 20131025
  Transmission Date: 20140711
  Serious: Yes (Other)
  Sender: FDA-Public Use
  Company Number: CA-ROCHE-1285487

PATIENT
  Age: 70 Year
  Sex: Female

DRUGS (8)
  1. XOLAIR [Suspect]
     Indication: ASTHMA
     Route: 058
     Dates: start: 20130826
  2. XOLAIR [Suspect]
     Route: 058
     Dates: start: 20130910
  3. METHOTREXATE [Suspect]
     Indication: PRODUCT USED FOR UNKNOWN INDICATION
     Route: 065
  4. ZENHALE [Concomitant]
  5. PREDNISONE [Concomitant]
  6. BRICANYL [Concomitant]
  7. SYNTHROID [Concomitant]
  8. NIMESULIDE [Concomitant]

REACTIONS (7)
  - Pneumonia [Unknown]
  - Platelet count decreased [Unknown]
  - Dizziness [Unknown]
  - Fatigue [Not Recovered/Not Resolved]
  - Headache [Not Recovered/Not Resolved]
  - Asthenia [Not Recovered/Not Resolved]
  - Herpes zoster [Unknown]
